FAERS Safety Report 8089734-8 (Version None)
Quarter: 2012Q1

REPORT INFORMATION
  Report Type: 
  Country: None (occurrence: None)
  Receive Date: 20120128
  Receipt Date: 20110705
  Transmission Date: 20120608
  Serious: No
  Sender: FDA-Public Use
  Company Number: US-ABBOTT-11P-163-0836093-00

PATIENT
  Age: 30 Year
  Sex: Female

DRUGS (3)
  1. HUMIRA [Suspect]
     Indication: CROHN'S DISEASE
     Dates: start: 20110615
  2. PROZAC [Concomitant]
     Indication: DEPRESSION
     Dosage: DAILY
  3. LORAZEPAM [Concomitant]
     Indication: ANXIETY
     Dosage: DAILY

REACTIONS (2)
  - MYALGIA [None]
  - INFLUENZA LIKE ILLNESS [None]
